FAERS Safety Report 7206394-6 (Version None)
Quarter: 2011Q1

REPORT INFORMATION
  Report Type: 
  Country: None (occurrence: None)
  Receive Date: 20110103
  Receipt Date: 20110103
  Transmission Date: 20110831
  Serious: Yes (Disabling)
  Sender: FDA-Public Use
  Company Number: PHHO2008TR12432

PATIENT
  Sex: Female
  Weight: 59 kg

DRUGS (5)
  1. TELMISARTAN [Concomitant]
  2. NORVASC [Concomitant]
     Indication: HYPERTENSION
  3. DILATREND [Concomitant]
     Indication: HYPERTENSION
  4. AFINITOR [Suspect]
     Indication: CARCINOID TUMOUR
     Dosage: 10 MG, QD
     Route: 048
     Dates: start: 20071121
  5. SANDOSTATIN LAR [Concomitant]
     Indication: CARCINOID TUMOUR
     Dosage: UNK
     Dates: start: 20071121

REACTIONS (4)
  - LUNG INFILTRATION [None]
  - TOTAL LUNG CAPACITY DECREASED [None]
  - INTERSTITIAL LUNG DISEASE [None]
  - COUGH [None]
